FAERS Safety Report 15223261 (Version 1)
Quarter: 2018Q3

REPORT INFORMATION
  Report Type: Spontaneous
  Country: US (occurrence: US)
  Receive Date: 20180731
  Receipt Date: 20180731
  Transmission Date: 20181010
  Serious: Yes (Other)
  Sender: FDA-Public Use
  Company Number: PHEH2018US029911

PATIENT
  Sex: Female

DRUGS (2)
  1. ALPRAZOLAM SANDOZ [Suspect]
     Active Substance: ALPRAZOLAM
     Indication: ANXIETY
     Route: 065
  2. ALPRAZOLAM SANDOZ [Suspect]
     Active Substance: ALPRAZOLAM
     Indication: GENERALISED TONIC-CLONIC SEIZURE

REACTIONS (5)
  - Generalised tonic-clonic seizure [Unknown]
  - Drug ineffective [Unknown]
  - Product physical issue [Unknown]
  - Condition aggravated [Unknown]
  - Anxiety [Unknown]
